FAERS Safety Report 8367197-2 (Version None)
Quarter: 2012Q2

REPORT INFORMATION
  Report Type: 
  Country: None (occurrence: None)
  Receive Date: 20120517
  Receipt Date: 20120510
  Transmission Date: 20120825
  Serious: Yes (Hospitalization)
  Sender: FDA-Public Use
  Company Number: PHHY2012FR040038

PATIENT
  Age: 39 Year
  Sex: Female
  Weight: 51 kg

DRUGS (3)
  1. ALPRAZOLAM [Suspect]
  2. VENLAFAXINE [Suspect]
     Indication: DEPRESSION
     Dosage: 7.5 G, ONCE/SINGLE
  3. ALPRAZOLAM [Suspect]
     Dosage: 45 MG, ONCE/SINGLE

REACTIONS (13)
  - HYPOGLYCAEMIA [None]
  - SEROTONIN SYNDROME [None]
  - MYDRIASIS [None]
  - HYPERHIDROSIS [None]
  - SINUS TACHYCARDIA [None]
  - URINARY RETENTION [None]
  - HYPERREFLEXIA [None]
  - CONFUSIONAL STATE [None]
  - AGITATION [None]
  - OVERDOSE [None]
  - TREMOR [None]
  - HEARING IMPAIRED [None]
  - HYPERINSULINISM [None]
